FAERS Safety Report 6073602-7 (Version None)
Quarter: 2009Q1

REPORT INFORMATION
  Report Type: 
  Country: None (occurrence: None)
  Receive Date: 20090211
  Receipt Date: 20090205
  Transmission Date: 20090719
  Serious: No
  Sender: FDA-Public Use
  Company Number: US-BAYER-200912662NA

PATIENT
  Age: 47 Year
  Sex: Female

DRUGS (3)
  1. NEXAVAR [Suspect]
     Indication: OVARIAN CANCER
     Dosage: TOTAL DAILY DOSE: 800 MG  UNIT DOSE: 200 MG
     Route: 048
     Dates: start: 20080911, end: 20081010
  2. VASELINE [Concomitant]
     Route: 061
  3. BANER CREAM [Concomitant]
     Route: 061

REACTIONS (2)
  - DERMATITIS CONTACT [None]
  - SKIN CHAPPED [None]
